FAERS Safety Report 8055719-0 (Version None)
Quarter: 2011Q4

REPORT INFORMATION
  Report Type: 
  Country: None (occurrence: None)
  Receive Date: 20111215
  Receipt Date: 20101112
  Transmission Date: 20120403
  Serious: Yes (Hospitalization)
  Sender: FDA-Public Use
  Company Number: APP201001004

PATIENT

DRUGS (2)
  1. AMIODARONE HYDROCHLORIDE [Suspect]
     Dosage: INTRAVENOUS
     Route: 042
     Dates: start: 20100801
  2. AMIODARONE HYDROCHLORIDE [Suspect]
     Dosage: INTRAVENOUS
     Route: 042

REACTIONS (1)
  - INJECTION SITE PHLEBITIS [None]
